FAERS Safety Report 6923484-3 (Version None)
Quarter: 2010Q3

REPORT INFORMATION
  Report Type: 
  Country: None (occurrence: None)
  Receive Date: 20100813
  Receipt Date: 20100805
  Transmission Date: 20110219
  Serious: Yes (Other)
  Sender: FDA-Public Use
  Company Number: GB-GENZYME-CERZ-1001454

PATIENT
  Age: 18 Year
  Sex: Male

DRUGS (1)
  1. CEREZYME [Suspect]
     Indication: GAUCHER'S DISEASE
     Dosage: UNK
     Route: 042

REACTIONS (3)
  - CHRONIC HEPATIC FAILURE [None]
  - LIVER TRANSPLANT [None]
  - OESOPHAGEAL VARICES HAEMORRHAGE [None]
